FAERS Safety Report 24104350 (Version 1)
Quarter: 2024Q3

REPORT INFORMATION
  Report Type: Spontaneous
  Country: US (occurrence: None)
  Receive Date: 20240716
  Receipt Date: 20240716
  Transmission Date: 20241017
  Serious: Yes (Death)
  Sender: Public
  Company Number: None

PATIENT
  Age: 21 Year
  Sex: Male

DRUGS (4)
  1. ACCUTANE [Suspect]
     Active Substance: ISOTRETINOIN
     Indication: Acne
     Dosage: 1 CAPSULE  TWICE A DAY ORAL
     Route: 048
     Dates: start: 20230828, end: 20240229
  2. ZENATANE [Suspect]
     Active Substance: ISOTRETINOIN
     Indication: Acne
     Dosage: 1 CAPSULE TWICE A DAY ORAL
     Route: 048
     Dates: start: 20230828, end: 20240229
  3. LEXAPRO [Suspect]
     Active Substance: ESCITALOPRAM OXALATE
  4. Multi- vitamin [Concomitant]

REACTIONS (5)
  - Completed suicide [None]
  - Hallucination [None]
  - Anxiety [None]
  - Panic attack [None]
  - Paranoia [None]

NARRATIVE: CASE EVENT DATE: 20240706
